FAERS Safety Report 9890114 (Version 1)
Quarter: 2014Q1

REPORT INFORMATION
  Report Type: Spontaneous
  Country: US (occurrence: US)
  Receive Date: 20140212
  Receipt Date: 20140212
  Transmission Date: 20141002
  Serious: No
  Sender: FDA-Public Use
  Company Number: US-BIOGENIDEC-2014BI011257

PATIENT
  Age: 24 Year
  Sex: Female

DRUGS (13)
  1. TECFIDERA [Suspect]
     Indication: MULTIPLE SCLEROSIS
     Route: 048
     Dates: start: 201312
  2. TECFIDERA [Suspect]
     Indication: MULTIPLE SCLEROSIS
     Route: 048
     Dates: end: 201401
  3. ZANAFLEX [Concomitant]
  4. PHENTERMINE [Concomitant]
  5. ABILIFY [Concomitant]
  6. EFFEXOR XR [Concomitant]
  7. AMBIEN [Concomitant]
  8. VALIUM [Concomitant]
  9. METOPROLOL SUCC ER [Concomitant]
  10. HYDROCODON-ACETAMINOPH [Concomitant]
  11. VITAMIN D3 [Concomitant]
  12. BACLOFEN [Concomitant]
  13. HUMIRA 2EA [Concomitant]

REACTIONS (2)
  - Urticaria [Unknown]
  - Dyspnoea [Unknown]
